FAERS Safety Report 8462713-4 (Version None)
Quarter: 2012Q2

REPORT INFORMATION
  Report Type: 
  Country: None (occurrence: None)
  Receive Date: 20120625
  Receipt Date: 20120621
  Transmission Date: 20120825
  Serious: Yes (Life-Threatening, Other)
  Sender: FDA-Public Use
  Company Number: IN-ROCHE-1078664

PATIENT
  Age: 49 Year
  Sex: Male
  Weight: 58 kg

DRUGS (9)
  1. METOPROLOL TARTRATE [Concomitant]
  2. MORPHINE [Concomitant]
  3. METALYSE [Suspect]
     Indication: ACUTE MYOCARDIAL INFARCTION
     Route: 042
     Dates: start: 20120611, end: 20120611
  4. ATENOLOL [Concomitant]
  5. HEPARIN [Concomitant]
     Dosage: DOSE: 5000
  6. TIABENDAZOLE [Concomitant]
  7. CLOPIDOGREL [Concomitant]
  8. ASPIRIN [Concomitant]
  9. PANTOCID [Concomitant]

REACTIONS (2)
  - CHEST DISCOMFORT [None]
  - DRUG INEFFECTIVE [None]
